FAERS Safety Report 9608298 (Version 3)
Quarter: 2013Q4

REPORT INFORMATION
  Report Type: Spontaneous
  Country: DE (occurrence: DE)
  Receive Date: 20131009
  Receipt Date: 20131213
  Transmission Date: 20140711
  Serious: Yes (Hospitalization, Other)
  Sender: FDA-Public Use
  Company Number: DE-CELGENEUS-062-21880-13100329

PATIENT
  Age: 60 Year
  Sex: Female

DRUGS (14)
  1. REVLIMID [Suspect]
     Indication: PLASMA CELL MYELOMA
     Route: 048
  2. REVLIMID [Suspect]
     Dosage: 5 MILLIGRAM
     Route: 048
     Dates: start: 20080116
  3. INTERFERON ALPHA [Concomitant]
     Indication: PLASMA CELL MYELOMA
     Route: 065
     Dates: start: 20081203, end: 20091029
  4. DEXAMETHASONE [Concomitant]
     Indication: PLASMA CELL MYELOMA
     Route: 065
     Dates: start: 20061114
  5. T-CELLS [Concomitant]
     Indication: PLASMA CELL MYELOMA
     Dosage: 1.7X10E6/KG
     Route: 065
     Dates: start: 20050714
  6. T-CELLS [Concomitant]
     Dosage: 4.5X10E6/KG
     Route: 065
     Dates: start: 20050922
  7. T-CELLS [Concomitant]
     Dosage: 1X10E7/KG
     Route: 065
     Dates: start: 20051108
  8. T-CELLS [Concomitant]
     Dosage: 5X10E7/KG
     Route: 065
     Dates: start: 20060110
  9. T-CELLS [Concomitant]
     Dosage: 1X10E8/KG
     Route: 065
     Dates: start: 20060316
  10. T-CELLS [Concomitant]
     Dosage: 1X10E7/KG
     Route: 065
     Dates: start: 20070616
  11. T-CELLS [Concomitant]
     Dosage: 4X10E6/KG
     Route: 065
     Dates: start: 20070726
  12. T-CELLS [Concomitant]
     Dosage: 4X10E7/KG
     Route: 065
     Dates: start: 20070317
  13. T-CELLS [Concomitant]
     Route: 065
     Dates: start: 20070505
  14. T-CELLS [Concomitant]
     Route: 065
     Dates: start: 20080804

REACTIONS (5)
  - Ileus paralytic [Unknown]
  - Capillary leak syndrome [Unknown]
  - Oedema [Unknown]
  - Hypersensitivity [Unknown]
  - Dyspnoea [Unknown]
